FAERS Safety Report 24642539 (Version 1)
Quarter: 2024Q4

REPORT INFORMATION
  Report Type: Spontaneous
  Country: US (occurrence: US)
  Receive Date: 20241120
  Receipt Date: 20241120
  Transmission Date: 20250115
  Serious: No
  Sender: PFIZER
  Company Number: US-PFIZER INC-PV202400149440

PATIENT
  Age: 43 Year
  Sex: Female

DRUGS (1)
  1. XELJANZ XR [Suspect]
     Active Substance: TOFACITINIB CITRATE
     Indication: Ankylosing spondylitis
     Dosage: 11 MG, 1X/DAY
     Route: 048
     Dates: start: 202410

REACTIONS (5)
  - Pulmonary pain [Unknown]
  - Pain [Unknown]
  - Breast swelling [Unknown]
  - Lymphadenopathy [Unknown]
  - Axillary pain [Unknown]

NARRATIVE: CASE EVENT DATE: 20241113
